FAERS Safety Report 18421006 (Version 1)
Quarter: 2020Q4

REPORT INFORMATION
  Report Type: Spontaneous
  Country: CO (occurrence: CO)
  Receive Date: 20201023
  Receipt Date: 20201023
  Transmission Date: 20210114
  Serious: Yes (Other)
  Sender: FDA-Public Use
  Company Number: CO-ALLERGAN-2040510US

PATIENT
  Sex: Male

DRUGS (1)
  1. CEFTAZIDIME;AVIBACTAM - BP [Suspect]
     Active Substance: AVIBACTAM SODIUM\CEFTAZIDIME
     Indication: PRODUCT USED FOR UNKNOWN INDICATION
     Dosage: UNK

REACTIONS (2)
  - Cardiac failure [Unknown]
  - Blood sodium increased [Unknown]
